FAERS Safety Report 14831663 (Version 2)
Quarter: 2019Q1

REPORT INFORMATION
  Report Type: Spontaneous
  Country: GB (occurrence: GB)
  Receive Date: 20180501
  Receipt Date: 20190112
  Transmission Date: 20190417
  Serious: Yes (Hospitalization)
  Sender: FDA-Public Use
  Company Number: GB-ACCORD-066240

PATIENT
  Age: 76 Year
  Sex: Male
  Weight: 63.9 kg

DRUGS (10)
  1. DONEPEZIL/DONEPEZIL HYDROCHLORIDE [Concomitant]
  2. LANSOPRAZOLE. [Suspect]
     Active Substance: LANSOPRAZOLE
     Indication: EPIGASTRIC DISCOMFORT
     Route: 048
  3. AMITRIPTYLINE [Suspect]
     Active Substance: AMITRIPTYLINE
     Indication: NEURALGIA
     Dosage: NIGHT
     Route: 048
  4. CYPROTERONE [Suspect]
     Active Substance: CYPROTERONE
     Indication: PROSTATE CANCER
     Route: 048
  5. DEXAMETHASONE. [Concomitant]
     Active Substance: DEXAMETHASONE
  6. GABAPENTIN. [Concomitant]
     Active Substance: GABAPENTIN
  7. ZOLADEX LA [Suspect]
     Active Substance: GOSERELIN ACETATE
     Indication: PROSTATE CANCER
     Route: 058
  8. PARACETAMOL [Concomitant]
     Active Substance: ACETAMINOPHEN
  9. ERGOCALCIFEROL. [Concomitant]
     Active Substance: ERGOCALCIFEROL
  10. LOSARTAN. [Concomitant]
     Active Substance: LOSARTAN

REACTIONS (2)
  - Femoral neck fracture [Recovering/Resolving]
  - Fall [Unknown]

NARRATIVE: CASE EVENT DATE: 20170927
